FAERS Safety Report 6386437-2 (Version None)
Quarter: 2009Q4

REPORT INFORMATION
  Report Type: 
  Country: None (occurrence: None)
  Receive Date: 20091002
  Receipt Date: 20090507
  Transmission Date: 20100525
  Serious: No
  Sender: FDA-Public Use
  Company Number: US-ASTRAZENECA-2009UW11639

PATIENT
  Age: 80 Year
  Sex: Female

DRUGS (4)
  1. ARIMIDEX [Suspect]
     Indication: NEOPLASM MALIGNANT
     Route: 048
     Dates: start: 20090401
  2. LISINOPRIL [Concomitant]
     Indication: HYPERTENSION
  3. NAPROSYN [Concomitant]
     Indication: PAIN
  4. FEMARA [Concomitant]

REACTIONS (4)
  - ASTHENIA [None]
  - FATIGUE [None]
  - PRESYNCOPE [None]
  - TREMOR [None]
